FAERS Safety Report 4786332-6 (Version None)
Quarter: 2005Q3

REPORT INFORMATION
  Report Type: 
  Country: None (occurrence: None)
  Receive Date: 20050927
  Receipt Date: 20050819
  Transmission Date: 20060218
  Serious: No
  Sender: FDA-Public Use
  Company Number: USA0508105993

PATIENT
  Age: 7 Year
  Sex: Male
  Weight: 26 kg

DRUGS (2)
  1. STRATTERA [Suspect]
     Dosage: 18 MG
     Dates: start: 20050819
  2. ADDERALL 10 [Concomitant]

REACTIONS (3)
  - MALAISE [None]
  - PALLOR [None]
  - SOMNOLENCE [None]
